FAERS Safety Report 16362594 (Version 1)
Quarter: 2019Q2

REPORT INFORMATION
  Report Type: Report from Study
  Country: GB (occurrence: US)
  Receive Date: 20190528
  Receipt Date: 20190528
  Transmission Date: 20190711
  Serious: Yes (Death)
  Sender: FDA-Public Use
  Company Number: GB-ELI_LILLY_AND_COMPANY-US201905012074

PATIENT

DRUGS (3)
  1. DOCETAXEL. [Concomitant]
     Active Substance: DOCETAXEL
     Indication: SOFT TISSUE SARCOMA
     Dosage: 75 MG/M2, CYCLICAL - DAY 8
     Route: 065
  2. ONTUXIZUMAB [Concomitant]
     Active Substance: ONTUXIZUMAB
     Indication: SOFT TISSUE SARCOMA
     Dosage: 8 MG/KG, CYCLICAL - DAYS 1 AND 8
     Route: 065
  3. GEMCITABINE HYDROCHLORIDE. [Suspect]
     Active Substance: GEMCITABINE HYDROCHLORIDE
     Indication: SOFT TISSUE SARCOMA
     Dosage: 900 MG/M2, CYCLICAL - DAYS 1 AND 8
     Route: 065

REACTIONS (1)
  - Cardiac arrest [Fatal]
